FAERS Safety Report 6568968-5 (Version None)
Quarter: 2010Q1

REPORT INFORMATION
  Report Type: 
  Country: None (occurrence: None)
  Receive Date: 20100201
  Receipt Date: 20100201
  Transmission Date: 20100710
  Serious: No
  Sender: FDA-Public Use
  Company Number: None

PATIENT
  Age: 70 Year
  Sex: Male
  Weight: 102.0593 kg

DRUGS (1)
  1. AVASTIN [Suspect]
     Indication: MACULAR DEGENERATION
     Dosage: 1250 MCG Q4 WEEKS INTRA-VITREAL EYE INJECTION OD 031
     Dates: start: 20080828

REACTIONS (3)
  - DRUG HYPERSENSITIVITY [None]
  - EYE PAIN [None]
  - IRITIS [None]
